FAERS Safety Report 8353167-7 (Version None)
Quarter: 2012Q2

REPORT INFORMATION
  Report Type: 
  Country: None (occurrence: None)
  Receive Date: 20120511
  Receipt Date: 20120508
  Transmission Date: 20120825
  Serious: Yes (Other)
  Sender: FDA-Public Use
  Company Number: US-PFIZER INC-2012112765

PATIENT
  Sex: Male

DRUGS (3)
  1. LOVAZA [Concomitant]
     Dosage: UNK
  2. LYRICA [Suspect]
     Dosage: 75 MG, 3X/DAY
     Route: 048
     Dates: end: 20120508
  3. LYRICA [Suspect]
     Indication: BACK PAIN
     Dosage: 75 MG, 1X/DAY
     Route: 048
     Dates: start: 20120401

REACTIONS (5)
  - BASAL CELL CARCINOMA [None]
  - RHINALGIA [None]
  - ERYTHEMA [None]
  - SUNBURN [None]
  - DRUG INEFFECTIVE [None]
